FAERS Safety Report 10168219 (Version 3)
Quarter: 2014Q2

REPORT INFORMATION
  Report Type: Spontaneous
  Country: JP (occurrence: JP)
  Receive Date: 20140512
  Receipt Date: 20140618
  Transmission Date: 20141212
  Serious: Yes (Hospitalization)
  Sender: FDA-Public Use
  Company Number: JP-ABBVIE-14K-087-1217248-00

PATIENT
  Age: 60 Year
  Sex: Male

DRUGS (6)
  1. HUMIRA [Suspect]
     Indication: RHEUMATOID ARTHRITIS
     Route: 058
     Dates: start: 20140225, end: 20140225
  2. STEROID [Concomitant]
     Indication: PNEUMONIA BACTERIAL
  3. STEROID [Concomitant]
     Indication: INTERSTITIAL LUNG DISEASE
     Dates: start: 201312
  4. STEROID [Concomitant]
     Dates: start: 20140303
  5. ETANERCEPT [Concomitant]
     Indication: RHEUMATOID ARTHRITIS
  6. METHOTREXATE [Concomitant]
     Indication: RHEUMATOID ARTHRITIS
     Dates: start: 201311

REACTIONS (3)
  - White blood cell count decreased [Recovered/Resolved]
  - Pyrexia [Recovered/Resolved]
  - Interstitial lung disease [Unknown]
